FAERS Safety Report 22807163 (Version 5)
Quarter: 2024Q1

REPORT INFORMATION
  Report Type: Report from Study
  Country: CO (occurrence: CO)
  Receive Date: 20230810
  Receipt Date: 20240315
  Transmission Date: 20240409
  Serious: Yes (Other)
  Sender: FDA-Public Use
  Company Number: CO-TAKEDA-2022TUS049473

PATIENT
  Age: 9 Year
  Sex: Female
  Weight: 29 kg

DRUGS (5)
  1. HUMAN IMMUNOGLOBULIN G\HYALURONIDASE RECOMBINANT HUMAN [Suspect]
     Active Substance: HUMAN IMMUNOGLOBULIN G\HYALURONIDASE (HUMAN RECOMBINANT)
     Indication: Primary immunodeficiency syndrome
     Dosage: 15 GRAM, MONTHLY
     Route: 058
     Dates: start: 20220716
  2. HUMAN IMMUNOGLOBULIN G\HYALURONIDASE RECOMBINANT HUMAN [Suspect]
     Active Substance: HUMAN IMMUNOGLOBULIN G\HYALURONIDASE (HUMAN RECOMBINANT)
     Dosage: 20 GRAM, MONTHLY
     Route: 058
  3. HUMAN IMMUNOGLOBULIN G\HYALURONIDASE RECOMBINANT HUMAN [Suspect]
     Active Substance: HUMAN IMMUNOGLOBULIN G\HYALURONIDASE (HUMAN RECOMBINANT)
     Dosage: 15 GRAM, MONTHLY
     Route: 058
  4. HUMAN IMMUNOGLOBULIN G\HYALURONIDASE RECOMBINANT HUMAN [Suspect]
     Active Substance: HUMAN IMMUNOGLOBULIN G\HYALURONIDASE (HUMAN RECOMBINANT)
     Dosage: 20 GRAM, Q3WEEKS
     Route: 058
     Dates: end: 20240214
  5. HUMAN IMMUNOGLOBULIN G [Suspect]
     Active Substance: HUMAN IMMUNOGLOBULIN G
     Indication: Product used for unknown indication
     Dosage: UNK
     Route: 065
     Dates: start: 20240306

REACTIONS (21)
  - Radius fracture [Unknown]
  - Drug hypersensitivity [Recovered/Resolved]
  - Weight increased [Unknown]
  - Body height increased [Unknown]
  - Body height abnormal [Unknown]
  - Aphthous ulcer [Recovering/Resolving]
  - Rash macular [Not Recovered/Not Resolved]
  - Contusion [Recovering/Resolving]
  - Fall [Unknown]
  - Pain [Recovering/Resolving]
  - Headache [Recovered/Resolved]
  - Vomiting [Recovering/Resolving]
  - Infusion site erythema [Recovered/Resolved]
  - Dizziness [Recovering/Resolving]
  - Infusion site pain [Recovered/Resolved]
  - Pyrexia [Recovered/Resolved]
  - Nausea [Recovered/Resolved]
  - Erythema [Recovering/Resolving]
  - Pruritus [Recovering/Resolving]
  - Burning sensation [Recovering/Resolving]
  - Puncture site erythema [Recovered/Resolved]

NARRATIVE: CASE EVENT DATE: 20220719
